FAERS Safety Report 18625485 (Version 1)
Quarter: 2020Q4

REPORT INFORMATION
  Report Type: Spontaneous
  Country: US (occurrence: US)
  Receive Date: 20201216
  Receipt Date: 20201216
  Transmission Date: 20210114
  Serious: Yes (Hospitalization)
  Sender: FDA-Public Use
  Company Number: US-FERRINGPH-2020FE08756

PATIENT
  Age: 31 Year
  Sex: Female
  Weight: 58 kg

DRUGS (6)
  1. PROGESTERONE. [Suspect]
     Active Substance: PROGESTERONE
     Indication: ASSISTED REPRODUCTIVE TECHNOLOGY
     Dosage: UNK
     Route: 065
     Dates: start: 201811
  2. MENOPUR [Concomitant]
     Active Substance: FOLLITROPIN\LUTEINIZING HORMONE
     Indication: ASSISTED REPRODUCTIVE TECHNOLOGY
     Dosage: UNK
     Dates: start: 201809
  3. ESTRADIOL. [Concomitant]
     Active Substance: ESTRADIOL
     Indication: ASSISTED REPRODUCTIVE TECHNOLOGY
     Dosage: UNK
     Dates: start: 201810
  4. PROGESTERONE. [Suspect]
     Active Substance: PROGESTERONE
     Indication: ASSISTED REPRODUCTIVE TECHNOLOGY
     Dosage: UNK
     Route: 065
     Dates: start: 20181114
  5. CONTRACEPTIVES [Suspect]
     Active Substance: UNSPECIFIED INGREDIENT
     Indication: IN VITRO FERTILISATION
     Dosage: UNK
     Route: 048
     Dates: start: 20180721, end: 20180821
  6. GANIRELIX [Concomitant]
     Active Substance: GANIRELIX
     Indication: ASSISTED REPRODUCTIVE TECHNOLOGY
     Dosage: UNK
     Dates: start: 201809

REACTIONS (1)
  - Breast enlargement [Recovered/Resolved with Sequelae]
